FAERS Safety Report 15084916 (Version 5)
Quarter: 2018Q3

REPORT INFORMATION
  Report Type: Report from Study
  Country: EC (occurrence: EC)
  Receive Date: 20180628
  Receipt Date: 20180829
  Transmission Date: 20181010
  Serious: Yes (Other)
  Sender: FDA-Public Use
  Company Number: PHHY2015EC076312

PATIENT
  Age: 52 Year
  Sex: Male
  Weight: 65.5 kg

DRUGS (5)
  1. TASIGNA [Suspect]
     Active Substance: NILOTINIB
     Dosage: 200 MG, BID
     Route: 048
     Dates: start: 20160623, end: 20180616
  2. TASIGNA [Suspect]
     Active Substance: NILOTINIB
     Indication: CHRONIC MYELOID LEUKAEMIA
     Dosage: 400 MG, BID (800 MG, QD)
     Route: 048
     Dates: start: 20150525, end: 20160522
  3. GLIVEC [Suspect]
     Active Substance: IMATINIB MESYLATE
     Dosage: 400 MG, QD
     Route: 048
     Dates: start: 20180618, end: 20180618
  4. GLIVEC [Suspect]
     Active Substance: IMATINIB MESYLATE
     Indication: CHRONIC MYELOID LEUKAEMIA
     Dosage: 400 MG, BID
     Route: 048
     Dates: start: 20110620, end: 20111020
  5. TASIGNA [Suspect]
     Active Substance: NILOTINIB
     Dosage: 200 MG, QD
     Route: 048
     Dates: start: 20180620, end: 20180722

REACTIONS (15)
  - Skin exfoliation [Recovering/Resolving]
  - Fear [Unknown]
  - Erythema [Recovering/Resolving]
  - Pruritus [Not Recovered/Not Resolved]
  - Dry skin [Not Recovered/Not Resolved]
  - Hepatic steatosis [Unknown]
  - Dizziness [Recovered/Resolved]
  - Hypothyroidism [Unknown]
  - Incorrect dose administered [Unknown]
  - Pruritus generalised [Recovering/Resolving]
  - Drug hypersensitivity [Recovering/Resolving]
  - Vomiting [Recovered/Resolved]
  - Skin discolouration [Not Recovered/Not Resolved]
  - Blood cholesterol increased [Unknown]
  - Paraesthesia [Recovering/Resolving]

NARRATIVE: CASE EVENT DATE: 20150525
